FAERS Safety Report 4961849-X (Version None)
Quarter: 2006Q1

REPORT INFORMATION
  Report Type: 
  Country: None (occurrence: None)
  Receive Date: 20060329
  Receipt Date: 20060320
  Transmission Date: 20060701
  Serious: Yes (Other)
  Sender: FDA-Public Use
  Company Number: 2006039430

PATIENT
  Age: 38 Year
  Sex: Female
  Weight: 56.246 kg

DRUGS (2)
  1. FRESHBURST LISTERINE (MENTHOL, METHYL SALICYLATE, EUCALYPTOL, THYMOL) [Suspect]
     Dosage: 1 CAP TWICE A DAY, ORAL
     Route: 048
     Dates: start: 20060201, end: 20060317
  2. LEVOTHYROXINE SODIUM [Concomitant]

REACTIONS (10)
  - ABSCESS [None]
  - BLISTER INFECTED [None]
  - CHAPPED LIPS [None]
  - DRUG HYPERSENSITIVITY [None]
  - LIP DRY [None]
  - LIP EXFOLIATION [None]
  - RASH [None]
  - SCAR [None]
  - SWELLING FACE [None]
  - URTICARIA [None]
